FAERS Safety Report 14384018 (Version 2)
Quarter: 2018Q1

REPORT INFORMATION
  Report Type: Spontaneous
  Country: US (occurrence: US)
  Receive Date: 20180115
  Receipt Date: 20180125
  Transmission Date: 20180509
  Serious: No
  Sender: FDA-Public Use
  Company Number: US-PFIZER INC-2018012213

PATIENT
  Age: 80 Year
  Sex: Female

DRUGS (2)
  1. EUCRISA [Suspect]
     Active Substance: CRISABOROLE
     Dosage: UNK [ON 2 OR 3 TIMES]
  2. EUCRISA [Suspect]
     Active Substance: CRISABOROLE
     Indication: RASH
     Dosage: UNK, [TRIED IT ONE NIGHT AND THEN YESTERDAY I PUT IT ON ONCE THE NIGHT/THEN TWICE YESTERDAY]

REACTIONS (7)
  - Application site discolouration [Unknown]
  - Application site pain [Unknown]
  - Intentional product misuse [Unknown]
  - Application site rash [Unknown]
  - Application site erythema [Unknown]
  - Drug ineffective for unapproved indication [Unknown]
  - Application site pruritus [Unknown]
